FAERS Safety Report 17121365 (Version 1)
Quarter: 2019Q4

REPORT INFORMATION
  Report Type: Spontaneous
  Country: US (occurrence: US)
  Receive Date: 20191205
  Receipt Date: 20191205
  Transmission Date: 20200122
  Serious: Yes (Other)
  Sender: FDA-Public Use
  Company Number: None

PATIENT
  Age: 53 Year
  Sex: Female
  Weight: 81.36 kg

DRUGS (5)
  1. DULOXETINE 60MG [Concomitant]
     Active Substance: DULOXETINE
  2. GABAPENTIN 800MG [Concomitant]
     Active Substance: GABAPENTIN
  3. TOPIRAMATE. [Concomitant]
     Active Substance: TOPIRAMATE
  4. ABACAVIR. [Suspect]
     Active Substance: ABACAVIR
     Indication: HIV INFECTION
     Route: 048
  5. BLISOVI FE 1.5MG-30 MCG [Concomitant]

REACTIONS (1)
  - Rash [None]

NARRATIVE: CASE EVENT DATE: 20181206
